FAERS Safety Report 6312122-9 (Version None)
Quarter: 2009Q3

REPORT INFORMATION
  Report Type: 
  Country: None (occurrence: None)
  Receive Date: 20090817
  Receipt Date: 20090805
  Transmission Date: 20100115
  Serious: Yes (Death)
  Sender: FDA-Public Use
  Company Number: GB-ELI_LILLY_AND_COMPANY-GB200908001191

PATIENT
  Sex: Male

DRUGS (2)
  1. OLANZAPINE [Suspect]
     Dosage: UNK
     Dates: start: 20020101, end: 20030101
  2. ZIPRASIDONE HCL [Concomitant]
     Dosage: UNK
     Dates: start: 20020101, end: 20030101

REACTIONS (1)
  - DEATH [None]
